FAERS Safety Report 24576407 (Version 2)
Quarter: 2024Q4

REPORT INFORMATION
  Report Type: Spontaneous
  Country: US (occurrence: US)
  Receive Date: 20241104
  Receipt Date: 20241116
  Transmission Date: 20250114
  Serious: No
  Sender: BAYER HEALTHCARE PHARMACEUTICALS INC.
  Company Number: US-BAYER-2024A156559

PATIENT
  Age: 26 Year
  Sex: Female
  Weight: 93.424 kg

DRUGS (3)
  1. MIRENA [Suspect]
     Active Substance: LEVONORGESTREL
     Indication: Intrauterine contraception
     Dosage: 20?G/DAY
     Route: 015
     Dates: start: 20240131
  2. NORETHINDRONE [Concomitant]
     Active Substance: NORETHINDRONE
     Dosage: 1 DF, QD
     Route: 048
     Dates: start: 20241024, end: 20241024
  3. ALBUTEROL [Concomitant]
     Active Substance: ALBUTEROL

REACTIONS (4)
  - Device dislocation [Recovered/Resolved]
  - Intermenstrual bleeding [None]
  - Device difficult to use [None]
  - Ovarian cyst [None]
